FAERS Safety Report 25530091 (Version 1)
Quarter: 2025Q3

REPORT INFORMATION
  Report Type: Spontaneous
  Country: EU (occurrence: EU)
  Receive Date: 20250708
  Receipt Date: 20250708
  Transmission Date: 20251020
  Serious: Yes (Life-Threatening, Hospitalization)
  Sender: MYLAN
  Company Number: None

PATIENT
  Age: 58 Year
  Sex: Female
  Weight: 54 kg

DRUGS (2)
  1. ISOPTIN [Suspect]
     Active Substance: VERAPAMIL HYDROCHLORIDE
     Indication: Supraventricular tachycardia
     Dates: start: 20250605, end: 20250605
  2. VERAPAMIL [Concomitant]
     Active Substance: VERAPAMIL HYDROCHLORIDE
     Indication: Heart rate abnormal
     Dosage: 40 MILLIGRAM, QD, (40MG PER DAY)

REACTIONS (7)
  - Cardiac disorder [Unknown]
  - Pulmonary hypertension [Unknown]
  - Pulmonary oedema [Unknown]
  - Hypoxia [Unknown]
  - Ejection fraction decreased [Unknown]
  - Cardiac failure acute [Unknown]
  - Hypotension [Unknown]

NARRATIVE: CASE EVENT DATE: 20250605
